FAERS Safety Report 25361073 (Version 1)
Quarter: 2025Q2

REPORT INFORMATION
  Report Type: Spontaneous
  Country: US (occurrence: US)
  Receive Date: 20250527
  Receipt Date: 20250527
  Transmission Date: 20250717
  Serious: No
  Sender: ROCHE
  Company Number: US-ROCHE-10000287945

PATIENT
  Age: 63 Year
  Sex: Female

DRUGS (2)
  1. XOLAIR PFS [Suspect]
     Active Substance: OMALIZUMAB
     Indication: Urticaria
     Dosage: STRENGTH: 150 MG/ML
     Route: 058
     Dates: start: 202403
  2. XOLAIR PFS [Suspect]
     Active Substance: OMALIZUMAB
     Indication: Idiopathic urticaria

REACTIONS (1)
  - Goitre [Unknown]

NARRATIVE: CASE EVENT DATE: 20250512
